FAERS Safety Report 5773354-1 (Version None)
Quarter: 2008Q2

REPORT INFORMATION
  Report Type: 
  Country: None (occurrence: None)
  Receive Date: 20080616
  Receipt Date: 20080516
  Transmission Date: 20081010
  Serious: Yes (Disabling)
  Sender: FDA-Public Use
  Company Number: VE-ELI_LILLY_AND_COMPANY-VE200806002599

PATIENT
  Sex: Female
  Weight: 56 kg

DRUGS (1)
  1. CYMBALTA [Suspect]
     Indication: RADICULOPATHY
     Dosage: 60 MG, DAILY (1/D)
     Route: 048

REACTIONS (1)
  - EXOPHTHALMOS [None]
